FAERS Safety Report 5498569-1 (Version None)
Quarter: 2007Q4

REPORT INFORMATION
  Report Type: 
  Country: None (occurrence: None)
  Receive Date: 20071024
  Receipt Date: 20071024
  Transmission Date: 20080405
  Serious: Yes (Hospitalization, Disabling)
  Sender: FDA-Public Use
  Company Number: None

PATIENT
  Sex: Female
  Weight: 10.8 kg

DRUGS (2)
  1. FENTANYL [Suspect]
  2. MIDAZOLAM HCL [Suspect]

REACTIONS (1)
  - RESPIRATORY DISTRESS [None]
